FAERS Safety Report 17727447 (Version 1)
Quarter: 2020Q2

REPORT INFORMATION
  Report Type: Report from Study
  Country: US (occurrence: US)
  Receive Date: 20200430
  Receipt Date: 20200430
  Transmission Date: 20200714
  Serious: Yes (Hospitalization)
  Sender: FDA-Public Use
  Company Number: US-EISAI MEDICAL RESEARCH-EC-2020-072339

PATIENT
  Age: 60 Year
  Sex: Female
  Weight: 75 kg

DRUGS (9)
  1. LENVIMA [Suspect]
     Active Substance: LENVATINIB
     Indication: ENDOMETRIAL CANCER
     Route: 048
     Dates: start: 202003, end: 202004
  2. MULTIVITAMINS [Concomitant]
     Active Substance: VITAMINS
  3. IBUPROFEN. [Concomitant]
     Active Substance: IBUPROFEN
  4. PRILOSEC [Concomitant]
     Active Substance: OMEPRAZOLE MAGNESIUM
  5. VARUBI [Concomitant]
     Active Substance: ROLAPITANT
  6. AMBIEN [Concomitant]
     Active Substance: ZOLPIDEM TARTRATE
  7. IRON [Concomitant]
     Active Substance: IRON
  8. ZOLOFT [Concomitant]
     Active Substance: SERTRALINE HYDROCHLORIDE
  9. HYDROCODONE-ACETAMINOPHEN [Concomitant]
     Active Substance: ACETAMINOPHEN\HYDROCODONE

REACTIONS (4)
  - Transfusion reaction [Unknown]
  - Dehydration [Unknown]
  - Vomiting [Unknown]
  - Influenza like illness [Unknown]

NARRATIVE: CASE EVENT DATE: 202003
